FAERS Safety Report 24185214 (Version 1)
Quarter: 2024Q3

REPORT INFORMATION
  Report Type: Spontaneous
  Country: US (occurrence: US)
  Receive Date: 20240807
  Receipt Date: 20240807
  Transmission Date: 20241017
  Serious: No
  Sender: GLENMARK
  Company Number: US-GLENMARK PHARMACEUTICALS-2024GMK090953

PATIENT

DRUGS (1)
  1. RYALTRIS [Suspect]
     Active Substance: MOMETASONE FUROATE MONOHYDRATE\OLOPATADINE HYDROCHLORIDE
     Indication: Product used for unknown indication
     Dosage: 2 DOSAGE FORM, OD,  INSTILL 2 SPRAYS INTO BOTH NOSTRILS ONCE DAILY
     Route: 045
     Dates: start: 20240328, end: 20240510

REACTIONS (4)
  - Blood pressure decreased [Unknown]
  - Depressed mood [Unknown]
  - Fatigue [Unknown]
  - Product use issue [Unknown]
